FAERS Safety Report 22064115 (Version 1)
Quarter: 2023Q1

REPORT INFORMATION
  Report Type: Spontaneous
  Country: US (occurrence: None)
  Receive Date: 20230304
  Receipt Date: 20230304
  Transmission Date: 20230417
  Serious: Yes (Disabling, Other)
  Sender: FDA-Public Use
  Company Number: None

PATIENT
  Sex: Female
  Weight: 135 kg

DRUGS (9)
  1. ABILIFY [Suspect]
     Active Substance: ARIPIPRAZOLE
     Indication: Bipolar disorder
     Dates: start: 20170101, end: 20201201
  2. AMBIEN [Suspect]
     Active Substance: ZOLPIDEM TARTRATE
  3. VYVANSE [Suspect]
     Active Substance: LISDEXAMFETAMINE DIMESYLATE
  4. WELLBUTRIN [Suspect]
     Active Substance: BUPROPION HYDROCHLORIDE
  5. MORPHINE [Suspect]
     Active Substance: MORPHINE
  6. FISH OIL [Concomitant]
     Active Substance: FISH OIL
  7. MINERALS\VITAMINS [Concomitant]
     Active Substance: MINERALS\VITAMINS
  8. IRON [Concomitant]
     Active Substance: IRON
  9. VITAMIN D [Concomitant]
     Active Substance: VITAMIN D NOS

REACTIONS (17)
  - Confusional state [None]
  - Dissociation [None]
  - Disturbance in attention [None]
  - Disturbance in attention [None]
  - Headache [None]
  - Insomnia [None]
  - Depression [None]
  - Judgement impaired [None]
  - Tremor [None]
  - Nausea [None]
  - Vomiting [None]
  - Hypersomnia [None]
  - Feeling abnormal [None]
  - Adverse reaction [None]
  - Impatience [None]
  - Agitation [None]
  - Adverse drug reaction [None]
